FAERS Safety Report 24397941 (Version 2)
Quarter: 2024Q4

REPORT INFORMATION
  Report Type: Spontaneous
  Country: JP (occurrence: JP)
  Receive Date: 20241004
  Receipt Date: 20241015
  Transmission Date: 20250114
  Serious: Yes (Hospitalization)
  Sender: Vantive US Healthcare
  Company Number: JP-VANTIVE-2024VAN020185

PATIENT
  Age: 60 Year
  Sex: Male

DRUGS (2)
  1. REGUNEAL LCA [Suspect]
     Active Substance: CALCIUM CHLORIDE\DEXTROSE MONOHYDRATE\HYDROCHLORIC ACID\MAGNESIUM CHLORIDE\SODIUM BICARBONATE\SODIUM
     Indication: Peritoneal dialysis
     Dosage: 1500ML
     Route: 033
     Dates: start: 20200416
  2. EXTRANEAL [Suspect]
     Active Substance: CALCIUM CHLORIDE\ICODEXTRIN\MAGNESIUM CHLORIDE\SODIUM CHLORIDE\SODIUM LACTATE
     Indication: Peritoneal dialysis
     Dosage: 1500ML
     Route: 033
     Dates: start: 20241001

REACTIONS (2)
  - Weight increased [Recovered/Resolved]
  - Hypervolaemia [Recovered/Resolved]

NARRATIVE: CASE EVENT DATE: 20241001
